FAERS Safety Report 7207025-1 (Version None)
Quarter: 2011Q1

REPORT INFORMATION
  Report Type: 
  Country: None (occurrence: None)
  Receive Date: 20110103
  Receipt Date: 20101222
  Transmission Date: 20110831
  Serious: No
  Sender: FDA-Public Use
  Company Number: B0682960A

PATIENT
  Sex: Male

DRUGS (5)
  1. MEVALOTIN [Concomitant]
     Dosage: 1IUAX PER DAY
     Route: 048
     Dates: start: 20041130
  2. RHYTHMY [Concomitant]
     Dosage: 1IUAX PER DAY
     Route: 048
     Dates: start: 20090203
  3. ALLERMIST [Suspect]
     Route: 045
     Dates: start: 20101027
  4. ZANTAC [Concomitant]
     Dosage: 1IUAX PER DAY
     Route: 048
     Dates: start: 19951019
  5. DIAZEPAM [Concomitant]
     Dosage: 1IUAX PER DAY
     Route: 048
     Dates: start: 20040413

REACTIONS (2)
  - RHINORRHOEA [None]
  - VISUAL IMPAIRMENT [None]
